FAERS Safety Report 18940631 (Version 1)
Quarter: 2021Q1

REPORT INFORMATION
  Report Type: Spontaneous
  Country: US (occurrence: US)
  Receive Date: 20210224
  Receipt Date: 20210224
  Transmission Date: 20210420
  Serious: Yes (Hospitalization)
  Sender: FDA-Public Use
  Company Number: None

PATIENT
  Age: 50 Year
  Sex: Male
  Weight: 95.4 kg

DRUGS (1)
  1. CISPLATIN. [Suspect]
     Active Substance: CISPLATIN
     Dates: end: 20210215

REACTIONS (5)
  - Oropharyngeal pain [None]
  - Pneumonia [None]
  - Hypomagnesaemia [None]
  - Hypokalaemia [None]
  - Febrile neutropenia [None]

NARRATIVE: CASE EVENT DATE: 20210220
